FAERS Safety Report 17430956 (Version 1)
Quarter: 2020Q1

REPORT INFORMATION
  Report Type: Spontaneous
  Country: US (occurrence: US)
  Receive Date: 20200218
  Receipt Date: 20200218
  Transmission Date: 20200409
  Serious: Yes (Other)
  Sender: FDA-Public Use
  Company Number: US-GILEAD-2020-0450840

PATIENT
  Age: 62 Year
  Sex: Male

DRUGS (1)
  1. STRIBILD [Suspect]
     Active Substance: COBICISTAT\ELVITEGRAVIR\EMTRICITABINE\TENOFOVIR DISOPROXIL FUMARATE
     Indication: HIV INFECTION
     Route: 065

REACTIONS (4)
  - Limb injury [Unknown]
  - Fall [Unknown]
  - Fatigue [Unknown]
  - Bone pain [Unknown]

NARRATIVE: CASE EVENT DATE: 20181107
